FAERS Safety Report 9528265 (Version 3)
Quarter: 2013Q4

REPORT INFORMATION
  Report Type: Report from Study
  Country: US (occurrence: US)
  Receive Date: 20130917
  Receipt Date: 20131121
  Transmission Date: 20140711
  Serious: Yes (Hospitalization)
  Sender: FDA-Public Use
  Company Number: PHEH2013US017789

PATIENT
  Sex: Female

DRUGS (13)
  1. SANDOSTATIN LAR DEPOT [Suspect]
     Indication: SMALL INTESTINE CARCINOMA
     Dosage: 30 MG
  2. SANDOSTATIN [Suspect]
     Indication: HYPOGLYCAEMIA
     Dosage: 200 UG, EVERY 06 HOURS
     Route: 058
     Dates: start: 20130829
  3. SANDOSTATIN [Suspect]
     Dosage: 250 UG, EVERY 06 HOURS
     Route: 058
  4. DEXAMETHASONE [Concomitant]
     Dosage: 01 DF, EVERY 08 HOURS
     Route: 048
     Dates: start: 20130829
  5. DIAZOXIDE [Concomitant]
     Dosage: 1.5 ML, EVERY 08 HOURS
     Dates: start: 20130829
  6. VENLAFAXINE [Concomitant]
     Dosage: 01 DF
     Route: 048
     Dates: start: 20130829
  7. FUROSEMIDE [Concomitant]
     Dosage: 01 DF, DAILY
     Route: 048
     Dates: start: 20130829
  8. TRAZODONE HYDROCHLORIDE [Concomitant]
     Dosage: 01 DF, DAILY
     Route: 048
     Dates: start: 20130829
  9. LORAZEPAM [Concomitant]
     Dosage: 2 MG
     Route: 048
     Dates: start: 20130829
  10. LORAZEPAM [Concomitant]
     Dosage: 0.5 MG
     Route: 048
  11. NYSTATIN [Concomitant]
     Dosage: 100000 U/ML
     Route: 048
     Dates: start: 20130829
  12. DECADRON [Concomitant]
     Dosage: UNK UKN, UNK
  13. DECADRON [Concomitant]
     Dosage: 01 MG

REACTIONS (6)
  - Ecchymosis [Unknown]
  - Discomfort [Unknown]
  - Tremor [Unknown]
  - Local swelling [Recovering/Resolving]
  - Blood glucose decreased [Unknown]
  - Hyperhidrosis [Unknown]
